FAERS Safety Report 17578323 (Version 1)
Quarter: 2020Q1

REPORT INFORMATION
  Report Type: Spontaneous
  Country: US (occurrence: US)
  Receive Date: 20200324
  Receipt Date: 20200324
  Transmission Date: 20200409
  Serious: No
  Sender: FDA-Public Use
  Company Number: US-PFIZER INC-2018470542

PATIENT
  Age: 55 Year
  Sex: Female

DRUGS (2)
  1. CELEBREX [Suspect]
     Active Substance: CELECOXIB
     Dosage: UNK
     Route: 048
  2. CELEBREX [Suspect]
     Active Substance: CELECOXIB
     Dosage: UNK, 3X/DAY (200 IN THE MORNING AND ONE AT NIGHT)

REACTIONS (4)
  - Off label use [Unknown]
  - Product dispensing error [Unknown]
  - Arthritis [Not Recovered/Not Resolved]
  - Product use issue [Unknown]
